FAERS Safety Report 4709273-9 (Version None)
Quarter: 2005Q3

REPORT INFORMATION
  Report Type: 
  Country: None (occurrence: None)
  Receive Date: 20050708
  Receipt Date: 20050704
  Transmission Date: 20060218
  Serious: Yes (Death, Other)
  Sender: FDA-Public Use
  Company Number: 2005GB01284

PATIENT
  Age: 75 Year
  Sex: Female

DRUGS (13)
  1. LISINOPRIL [Suspect]
     Indication: HYPERTENSION
     Route: 048
  2. ARAVA [Suspect]
     Indication: RHEUMATOID ARTHRITIS
     Route: 048
  3. ASPIRIN [Concomitant]
     Route: 065
  4. ATORVASTATIN CALCIUM [Concomitant]
     Route: 065
     Dates: start: 19990101
  5. BUDESONIDE [Concomitant]
     Route: 065
  6. DILTIAZEM HYDROCHLORIDE [Concomitant]
     Route: 065
  7. FENTANYL [Concomitant]
     Route: 065
  8. LANSOPRAZOLE [Concomitant]
     Route: 065
  9. MIDAZOLAM HCL [Concomitant]
     Route: 065
  10. NITROGLYCERIN [Concomitant]
     Route: 065
  11. PANCURONIUM BROMIDE [Concomitant]
     Route: 065
  12. PROPOFOL [Concomitant]
     Route: 065
  13. QUININE SULPHATE [Concomitant]
     Route: 065

REACTIONS (5)
  - CORONARY ARTERY DISEASE [None]
  - GASTROINTESTINAL HAEMORRHAGE [None]
  - HEPATIC FAILURE [None]
  - RENAL FAILURE [None]
  - ULCER [None]
